FAERS Safety Report 4291916-8 (Version None)
Quarter: 2004Q1

REPORT INFORMATION
  Report Type: 
  Country: None (occurrence: None)
  Receive Date: 20040210
  Receipt Date: 20040210
  Transmission Date: 20041129
  Serious: Yes (Other)
  Sender: FDA-Public Use
  Company Number: None

PATIENT
  Sex: Male

DRUGS (2)
  1. OXALIPLATIN  SANOFI [Suspect]
     Indication: RECTAL CANCER METASTATIC
     Dosage: 240 MG INTRAVENOUS
     Route: 042
     Dates: start: 20031219, end: 20040130
  2. OXALIPLATIN  SANOFI [Suspect]

REACTIONS (4)
  - HYPOAESTHESIA [None]
  - MUSCLE CRAMP [None]
  - PAIN IN EXTREMITY [None]
  - PARAESTHESIA [None]
